FAERS Safety Report 5963405-3 (Version None)
Quarter: 2008Q4

REPORT INFORMATION
  Report Type: 
  Country: None (occurrence: None)
  Receive Date: 20081121
  Receipt Date: 20081121
  Transmission Date: 20090506
  Serious: Yes (Disabling, Other)
  Sender: FDA-Public Use
  Company Number: None

PATIENT
  Age: 50 Year
  Sex: Female
  Weight: 48.5349 kg

DRUGS (7)
  1. DURAGESIC-75 [Suspect]
     Indication: PAIN
     Dosage: 75MCG/H EVERY 72 HRS TRANSDERMAL
     Route: 062
     Dates: start: 20080901, end: 20081101
  2. DURAGESIC-25 [Suspect]
     Dosage: 25MCG/H 48 HR REMOVE AT 72 TRANSDERMAL
     Route: 062
     Dates: start: 20080701, end: 20081101
  3. HYDROCODONE BITARTRATE [Concomitant]
  4. PLAQUINAL [Concomitant]
  5. DILANTIN [Concomitant]
  6. ZOLOFT [Concomitant]
  7. ESTRADIOL [Concomitant]

REACTIONS (2)
  - CEREBROVASCULAR ACCIDENT [None]
  - DRUG WITHDRAWAL SYNDROME [None]
